FAERS Safety Report 11253788 (Version 1)
Quarter: 2015Q3

REPORT INFORMATION
  Report Type: Spontaneous
  Country: GR (occurrence: GR)
  Receive Date: 20150709
  Receipt Date: 20150709
  Transmission Date: 20151125
  Serious: Yes (Death, Hospitalization)
  Sender: FDA-Public Use
  Company Number: GR-BAYER-2015-364090

PATIENT
  Age: 80 Year
  Sex: Female

DRUGS (6)
  1. ATROVENT [Concomitant]
     Active Substance: IPRATROPIUM BROMIDE
     Indication: PYREXIA
  2. AEROLIN [Concomitant]
     Active Substance: ALBUTEROL
     Dosage: UNK
  3. IMDUR [Concomitant]
     Active Substance: ISOSORBIDE MONONITRATE
     Indication: CARDIAC DISORDER
  4. OCTEGRA [Suspect]
     Active Substance: MOXIFLOXACIN
     Indication: PYREXIA
  5. ATROVENT [Concomitant]
     Active Substance: IPRATROPIUM BROMIDE
     Indication: RESPIRATORY TRACT INFECTION
     Dosage: UNK
     Dates: start: 20150616
  6. OCTEGRA [Suspect]
     Active Substance: MOXIFLOXACIN
     Indication: RESPIRATORY TRACT INFECTION
     Dosage: 400 MG, QD
     Dates: start: 20150616

REACTIONS (3)
  - Rash [None]
  - Myocardial infarction [Fatal]
  - Arrhythmia [None]

NARRATIVE: CASE EVENT DATE: 201506
